FAERS Safety Report 20524153 (Version 2)
Quarter: 2022Q1

REPORT INFORMATION
  Report Type: Spontaneous
  Country: ZA (occurrence: None)
  Receive Date: 20220228
  Receipt Date: 20220320
  Transmission Date: 20220424
  Serious: No
  Sender: FDA-Public Use
  Company Number: ZA-ROCHE-3037303

PATIENT
  Sex: Female

DRUGS (2)
  1. HERCEPTIN [Suspect]
     Active Substance: TRASTUZUMAB
     Indication: Breast cancer metastatic
     Dosage: 1ST LINE TREATMENT WITH TRASTUZUMAB + CAPECITABINE
     Route: 065
  2. CAPECITABINE [Suspect]
     Active Substance: CAPECITABINE
     Indication: Breast cancer metastatic
     Dosage: 1ST LINE TREATMENT WITH TRASTUZUMAB + CAPECITABINE
     Route: 048

REACTIONS (1)
  - Disease progression [Unknown]
